FAERS Safety Report 5837150-9 (Version None)
Quarter: 2008Q3

REPORT INFORMATION
  Report Type: 
  Country: None (occurrence: None)
  Receive Date: 20080807
  Receipt Date: 20080804
  Transmission Date: 20090109
  Serious: Yes (Life-Threatening, Hospitalization)
  Sender: FDA-Public Use
  Company Number: FR-AVENTIS-200812891FR

PATIENT
  Age: 61 Year
  Sex: Female

DRUGS (3)
  1. TRIATEC                            /00885601/ [Suspect]
     Route: 048
     Dates: start: 20080515, end: 20080613
  2. AMARYL [Suspect]
     Indication: DIABETES MELLITUS
     Route: 048
     Dates: start: 20080520, end: 20080613
  3. COAPROVEL [Suspect]
     Dosage: DOSE: 300/12.5
     Route: 048
     Dates: start: 20080515, end: 20080613

REACTIONS (1)
  - TOXIC EPIDERMAL NECROLYSIS [None]
